FAERS Safety Report 6616539-4 (Version None)
Quarter: 2010Q1

REPORT INFORMATION
  Report Type: 
  Country: None (occurrence: None)
  Receive Date: 20100305
  Receipt Date: 20100222
  Transmission Date: 20100710
  Serious: Yes (Other)
  Sender: FDA-Public Use
  Company Number: FR-PFIZER INC-2010023141

PATIENT
  Age: 46 Year
  Sex: Female

DRUGS (1)
  1. SOMAVERT [Suspect]
     Dosage: 15 MG, SINGLE
     Dates: start: 20100219, end: 20100219

REACTIONS (1)
  - ANAPHYLACTIC SHOCK [None]
